FAERS Safety Report 18066486 (Version 1)
Quarter: 2020Q3

REPORT INFORMATION
  Report Type: Spontaneous
  Country: US (occurrence: US)
  Receive Date: 20200724
  Receipt Date: 20200724
  Transmission Date: 20201103
  Serious: No
  Sender: FDA-Public Use
  Company Number: US-VERTEX PHARMACEUTICALS-2020-015259

PATIENT
  Sex: Male
  Weight: 18.14 kg

DRUGS (1)
  1. ORKAMBI [Suspect]
     Active Substance: IVACAFTOR\LUMACAFTOR
     Indication: CYSTIC FIBROSIS
     Dosage: 150/188MG, BID
     Route: 048

REACTIONS (1)
  - Pseudomonas test positive [Unknown]

NARRATIVE: CASE EVENT DATE: 2020
